FAERS Safety Report 7866284-2 (Version None)
Quarter: 2011Q4

REPORT INFORMATION
  Report Type: 
  Country: None (occurrence: None)
  Receive Date: 20111028
  Receipt Date: 20110525
  Transmission Date: 20120403
  Serious: No
  Sender: FDA-Public Use
  Company Number: US-GLAXOSMITHKLINE-A0929134A

PATIENT
  Age: 78 Year
  Sex: Female

DRUGS (6)
  1. FENOFIBRATE [Concomitant]
  2. ADVAIR DISKUS 100/50 [Suspect]
     Indication: CHRONIC OBSTRUCTIVE PULMONARY DISEASE
     Dosage: 1PUFF TWICE PER DAY
     Route: 055
     Dates: start: 20060101
  3. VENTOLIN [Suspect]
     Indication: CHRONIC OBSTRUCTIVE PULMONARY DISEASE
     Dosage: 1PUFF AS REQUIRED
     Route: 055
     Dates: start: 20010101
  4. SIMVASTATIN [Concomitant]
  5. DIOVAN HCT [Concomitant]
  6. METOPROLOL TARTRATE [Concomitant]

REACTIONS (2)
  - MALAISE [None]
  - BRONCHITIS [None]
